FAERS Safety Report 6589917-X (Version None)
Quarter: 2010Q1

REPORT INFORMATION
  Report Type: 
  Country: None (occurrence: None)
  Receive Date: 20100219
  Receipt Date: 20100209
  Transmission Date: 20100710
  Serious: Yes (Hospitalization, Other)
  Sender: FDA-Public Use
  Company Number: IT-BAYER-200941304GPV

PATIENT
  Age: 60 Year
  Sex: Male

DRUGS (3)
  1. NEXAVAR [Suspect]
     Indication: HEPATIC NEOPLASM MALIGNANT
     Dosage: TOTAL DAILY DOSE: 800 MG
     Route: 048
     Dates: start: 20090603, end: 20090903
  2. AMOXICILLIN AND CLAVULANATE POTASSIUM [Concomitant]
     Indication: HERPES ZOSTER
  3. ACYCLOVIR [Concomitant]
     Indication: HERPES ZOSTER

REACTIONS (7)
  - BLISTER [None]
  - HYPERPYREXIA [None]
  - LIVER FUNCTION TEST ABNORMAL [None]
  - MYOSITIS [None]
  - PRURITUS [None]
  - RASH [None]
  - RASH PRURITIC [None]
